FAERS Safety Report 9530904 (Version 1)
Quarter: 2013Q2

REPORT INFORMATION
  Report Type: Spontaneous
  Country: US (occurrence: None)
  Receive Date: 20130418
  Receipt Date: 20130418
  Transmission Date: 20140414
  Serious: Yes (Other)
  Sender: FDA-Public Use
  Company Number: 1007USA03839

PATIENT
  Age: 69 Year
  Sex: Female
  Weight: 86.2 kg

DRUGS (1)
  1. SINGULAIR (MONTELUKAST SODIUM) TABLET [Suspect]
     Indication: ASTHMA
     Route: 048
     Dates: start: 20070801, end: 20091101

REACTIONS (1)
  - Irritability [None]
